FAERS Safety Report 9791878 (Version 1)
Quarter: 2014Q1

REPORT INFORMATION
  Report Type: Spontaneous
  Country: US (occurrence: US)
  Receive Date: 20140102
  Receipt Date: 20140102
  Transmission Date: 20141002
  Serious: No
  Sender: FDA-Public Use
  Company Number: US-PFIZER INC-2013374227

PATIENT
  Age: 41 Year
  Sex: Female
  Weight: 79.37 kg

DRUGS (2)
  1. LYRICA [Suspect]
     Indication: FIBROMYALGIA
     Dosage: 150 MG, 3X/DAY
     Route: 048
     Dates: start: 20131205
  2. CYMBALTA [Concomitant]
     Dosage: 90 MG, 1X/DAY

REACTIONS (3)
  - Drug screen false positive [Unknown]
  - Muscle spasms [Unknown]
  - Middle insomnia [Unknown]
